FAERS Safety Report 8994770 (Version 2)
Quarter: 2013Q1

REPORT INFORMATION
  Report Type: Spontaneous
  Country: US (occurrence: US)
  Receive Date: 20130102
  Receipt Date: 20130107
  Transmission Date: 20140127
  Serious: Yes (Other)
  Sender: FDA-Public Use
  Company Number: US-AMGEN-USASP2012078620

PATIENT
  Age: 69 Year
  Sex: Female
  Weight: 124 kg

DRUGS (4)
  1. ENBREL [Suspect]
     Indication: PSORIASIS
     Dosage: 50 MG, 2 TIMES/WK
     Dates: start: 20110909, end: 20121118
  2. LASIX                              /00032601/ [Concomitant]
     Dosage: 160 MG, EVERY MORNING
  3. NYSTATIN [Concomitant]
  4. ACIDOPHILUS [Concomitant]
     Dosage: UNK

REACTIONS (16)
  - Blindness [Unknown]
  - Dyspnoea [Unknown]
  - Oedema [Unknown]
  - Cataract [Unknown]
  - Scar [Unknown]
  - Pruritus [Unknown]
  - Skin infection [Recovered/Resolved]
  - Pain in extremity [Unknown]
  - Pollakiuria [Unknown]
  - Blood pressure increased [Unknown]
  - Candida infection [Unknown]
  - Cellulitis [Unknown]
  - Bronchitis [Not Recovered/Not Resolved]
  - Psoriasis [Unknown]
  - Oral candidiasis [Unknown]
  - Candida infection [Unknown]
